FAERS Safety Report 11639770 (Version 1)
Quarter: 2015Q4

REPORT INFORMATION
  Report Type: Spontaneous
  Country: US (occurrence: None)
  Receive Date: 20151016
  Receipt Date: 20151016
  Transmission Date: 20160304
  Serious: Yes (Other)
  Sender: FDA-Public Use
  Company Number: None

PATIENT
  Age: 51 Year
  Sex: Female
  Weight: 91.17 kg

DRUGS (8)
  1. LAMITRINE [Concomitant]
  2. TRAZODONE [Concomitant]
     Active Substance: TRAZODONE HYDROCHLORIDE
  3. VITAMIN E [Concomitant]
     Active Substance: .ALPHA.-TOCOPHEROL
  4. ABILIFY [Concomitant]
     Active Substance: ARIPIPRAZOLE
  5. SYNTHROID [Concomitant]
     Active Substance: LEVOTHYROXINE SODIUM
  6. CLOZAPINE. [Concomitant]
     Active Substance: CLOZAPINE
  7. ARIPIPRAZOLE 30 MG TRIGEN LABORATORIES, LLC [Suspect]
     Active Substance: ARIPIPRAZOLE
     Indication: BIPOLAR DISORDER
     Route: 048
     Dates: start: 20150801, end: 20150906
  8. DAILY VITIMINE [Concomitant]

REACTIONS (4)
  - Homicidal ideation [None]
  - No therapeutic response [None]
  - Product substitution issue [None]
  - Suicidal ideation [None]

NARRATIVE: CASE EVENT DATE: 20150904
